FAERS Safety Report 8471235 (Version 2)
Quarter: 2013Q1

REPORT INFORMATION
  Report Type: Spontaneous
  Country: US (occurrence: US)
  Receive Date: 20120322
  Receipt Date: 20130227
  Transmission Date: 20140127
  Serious: No
  Sender: FDA-Public Use
  Company Number: US-PFIZER INC-2011051744

PATIENT
  Age: 73 Year
  Sex: Male

DRUGS (19)
  1. TIKOSYN [Suspect]
     Indication: ATRIAL FIBRILLATION
     Dosage: 125 UG, TWICE A DAY
     Route: 048
  2. TIKOSYN [Suspect]
     Dosage: 250 UG, TWICE A DAY
     Route: 048
  3. TORSEMIDE [Concomitant]
     Dosage: 10 MG THREE TIIMES A WEEK
  4. LISINOPRIL [Concomitant]
     Dosage: 20 MG, TWICE A DAY
     Route: 048
  5. COREG [Concomitant]
     Dosage: 12.5 MG, TWICE A DAY
     Route: 048
  6. ALPRAZOLAM [Concomitant]
     Dosage: 0.25 MG, TWICE A DAY AS NEEDED
     Route: 048
  7. CRESTOR [Concomitant]
     Dosage: 10 MG, DAILY
  8. TIKOSYN [Concomitant]
     Dosage: 250 UG, TWICE A DAY
     Route: 048
  9. ASA [Concomitant]
     Dosage: 81 MG, EVERY MORNING
     Route: 048
  10. FINASTERIDE [Concomitant]
     Dosage: 5 MG, DAILY
     Route: 048
  11. JANTOVEN [Concomitant]
     Dosage: 7.5 MG, AS DIRECTED
  12. CARVEDILOL [Concomitant]
     Dosage: 12.5 MG, TWICE A DAY
  13. METHOCARBAMOL [Concomitant]
     Dosage: 500 MG AS NEEDED
  14. ACETAMINOPHEN [Concomitant]
     Dosage: 650 MG, AS NEEDED
  15. AMLODIPINE [Concomitant]
     Dosage: 5 MG, DAILY
     Route: 048
  16. CLONIDINE HYDROCHLORIDE [Concomitant]
     Dosage: 0.1 MG, TWICE A DAY
     Route: 048
  17. SERTRALINE HYDROCHLORIDE [Concomitant]
     Dosage: 25 MG, DAILY
     Route: 048
  18. VITAMIN B12 [Concomitant]
     Dosage: 1000 MCG/ML, MONTHLY
  19. VITAMIN B12 [Concomitant]
     Dosage: 250 UG, DAILY
     Route: 048

REACTIONS (3)
  - Incorrect dose administered [Unknown]
  - Blood pressure increased [Unknown]
  - Dysphonia [Unknown]
